FAERS Safety Report 4335196-3 (Version None)
Quarter: 2004Q2

REPORT INFORMATION
  Report Type: 
  Country: None (occurrence: None)
  Receive Date: 20040408
  Receipt Date: 20040331
  Transmission Date: 20050107
  Serious: Yes (Other)
  Sender: FDA-Public Use
  Company Number: PHBS2004NO04368

PATIENT
  Age: 85 Year
  Sex: Female

DRUGS (1)
  1. ZOMETA [Suspect]
     Indication: MULTIPLE MYELOMA
     Dosage: 4 MG, QMO
     Route: 065

REACTIONS (5)
  - BONE DISORDER [None]
  - EATING DISORDER [None]
  - HALITOSIS [None]
  - ORAL PAIN [None]
  - OSTEOMYELITIS [None]
